FAERS Safety Report 14615019 (Version 1)
Quarter: 2018Q1

REPORT INFORMATION
  Report Type: Spontaneous
  Country: RU (occurrence: RU)
  Receive Date: 20180308
  Receipt Date: 20180308
  Transmission Date: 20180509
  Serious: Yes (Other)
  Sender: FDA-Public Use
  Company Number: RU-FRESENIUS KABI-FK201802540

PATIENT
  Age: 26 Year
  Sex: Male

DRUGS (1)
  1. PROPOFOL 2% (MANUFACTURER UNKNOWN) (PROPOFOL) (PROPOFOL) [Suspect]
     Active Substance: PROPOFOL
     Indication: INSOMNIA
     Route: 065

REACTIONS (2)
  - Respiratory arrest [Unknown]
  - Drug dependence [Unknown]
